FAERS Safety Report 25684303 (Version 1)
Quarter: 2025Q3

REPORT INFORMATION
  Report Type: Spontaneous
  Country: CA (occurrence: CA)
  Receive Date: 20250815
  Receipt Date: 20250815
  Transmission Date: 20251020
  Serious: Yes (Other)
  Sender: ABBVIE
  Company Number: CA-LUNDBECK-DKLU4018102

PATIENT
  Age: 49 Year
  Sex: Female

DRUGS (6)
  1. CIPRALEX [Interacting]
     Active Substance: ESCITALOPRAM OXALATE
     Indication: Product used for unknown indication
     Route: 065
  2. LORAZEPAM [Concomitant]
     Active Substance: LORAZEPAM
     Indication: Product used for unknown indication
  3. LETROZOLE [Concomitant]
     Active Substance: LETROZOLE
     Indication: Product used for unknown indication
  4. GOSERELIN [Interacting]
     Active Substance: GOSERELIN
     Indication: Product used for unknown indication
     Dosage: DOSAGE 1
     Route: 058
  5. GOSERELIN [Interacting]
     Active Substance: GOSERELIN
     Indication: Product used for unknown indication
  6. LANSOPRAZOLE [Concomitant]
     Active Substance: LANSOPRAZOLE
     Indication: Product used for unknown indication

REACTIONS (3)
  - Cardiac flutter [Unknown]
  - Palpitations [Unknown]
  - Drug interaction [Unknown]
